FAERS Safety Report 21422503 (Version 7)
Quarter: 2025Q3

REPORT INFORMATION
  Report Type: Spontaneous
  Country: US (occurrence: US)
  Receive Date: 20221007
  Receipt Date: 20250715
  Transmission Date: 20251020
  Serious: No
  Sender: PFIZER
  Company Number: US-PFIZER INC-PV202200059690

PATIENT
  Age: 60 Year
  Sex: Female

DRUGS (16)
  1. IBRANCE [Suspect]
     Active Substance: PALBOCICLIB
     Indication: Breast cancer female
     Route: 048
     Dates: start: 20170331
  2. IBRANCE [Suspect]
     Active Substance: PALBOCICLIB
     Route: 048
     Dates: start: 20220128
  3. ASPIRIN [Concomitant]
     Active Substance: ASPIRIN
  4. FASLODEX [Concomitant]
     Active Substance: FULVESTRANT
  5. MINOXIDIL [Concomitant]
     Active Substance: MINOXIDIL
  6. XDEMVY [Concomitant]
     Active Substance: LOTILANER
  7. ALBUTEROL SULFATE [Concomitant]
     Active Substance: ALBUTEROL SULFATE
  8. DESONIDE [Concomitant]
     Active Substance: DESONIDE
  9. FLUTICASONE PROPIONATE\SALMETEROL XINAFOATE [Concomitant]
     Active Substance: FLUTICASONE PROPIONATE\SALMETEROL XINAFOATE
  10. FULVESTRANT [Concomitant]
     Active Substance: FULVESTRANT
  11. GABAPENTIN [Concomitant]
     Active Substance: GABAPENTIN
  12. IBUPROFEN [Concomitant]
     Active Substance: IBUPROFEN
  13. LOSARTAN POTASSIUM [Concomitant]
     Active Substance: LOSARTAN POTASSIUM
  14. MONTELUKAST [Concomitant]
     Active Substance: MONTELUKAST
  15. OMEPRAZOLE [Concomitant]
     Active Substance: OMEPRAZOLE
  16. TRIAMCINOLONE [Concomitant]
     Active Substance: TRIAMCINOLONE

REACTIONS (4)
  - Product dose omission in error [Unknown]
  - Alopecia [Unknown]
  - Nasopharyngitis [Not Recovered/Not Resolved]
  - White blood cell count decreased [Unknown]

NARRATIVE: CASE EVENT DATE: 20240101
